FAERS Safety Report 19573330 (Version 1)
Quarter: 2021Q3

REPORT INFORMATION
  Report Type: Report from Study
  Country: CN (occurrence: CN)
  Receive Date: 20210717
  Receipt Date: 20210717
  Transmission Date: 20211014
  Serious: Yes (Other)
  Sender: FDA-Public Use
  Company Number: CN-SUN PHARMACEUTICAL INDUSTRIES LTD-2021R1-304328

PATIENT
  Age: 62 Year
  Sex: Female

DRUGS (3)
  1. OXALIPLATIN. [Suspect]
     Active Substance: OXALIPLATIN
     Indication: CHEMOTHERAPY
     Dosage: 100 MILLIGRAM , UNK (2 CYCLES)
     Route: 042
  2. GEMCITABINE. [Suspect]
     Active Substance: GEMCITABINE
     Indication: CHEMOTHERAPY
     Dosage: 1200 MILLIGRAM , UNK (2 CYCLES)
     Route: 042
  3. PEMBROLIZUMAB. [Suspect]
     Active Substance: PEMBROLIZUMAB
     Indication: CHEMOTHERAPY
     Dosage: 200 MILLIGRAM, QD
     Route: 042

REACTIONS (3)
  - Nausea [Unknown]
  - Flatulence [Unknown]
  - Disease progression [Unknown]
